FAERS Safety Report 21734890 (Version 2)
Quarter: 2023Q1

REPORT INFORMATION
  Report Type: Report from Study
  Country: CA (occurrence: CA)
  Receive Date: 20221215
  Receipt Date: 20230111
  Transmission Date: 20230418
  Serious: Yes (Hospitalization)
  Sender: FDA-Public Use
  Company Number: CA-002147023-NVSC2022CA247646

PATIENT
  Age: 46 Year
  Sex: Female

DRUGS (1)
  1. ELTROMBOPAG OLAMINE [Suspect]
     Active Substance: ELTROMBOPAG OLAMINE
     Indication: Immune thrombocytopenia
     Dosage: 25 MG, QD
     Route: 048
     Dates: start: 20210801

REACTIONS (10)
  - Contusion [Unknown]
  - Peripheral swelling [Unknown]
  - White blood cell count increased [Unknown]
  - Memory impairment [Unknown]
  - Infection [Unknown]
  - Headache [Unknown]
  - Herpes zoster [Recovering/Resolving]
  - Eye pain [Recovered/Resolved]
  - Abdominal pain upper [Unknown]
  - Alopecia [Unknown]

NARRATIVE: CASE EVENT DATE: 20221220
